FAERS Safety Report 8935089 (Version 1)
Quarter: 2012Q4

REPORT INFORMATION
  Report Type: 
  Country: US (occurrence: US)
  Receive Date: 20121129
  Receipt Date: 20121129
  Transmission Date: 20130627
  Serious: No
  Sender: FDA-Public Use
  Company Number: US-PFIZER INC-2012297215

PATIENT
  Age: 61 Year
  Sex: Male
  Weight: 104 kg

DRUGS (6)
  1. VIAGRA [Suspect]
     Indication: ERECTILE DYSFUNCTION
     Dosage: 100 mg, UNK
     Route: 048
     Dates: start: 2002
  2. VIAGRA [Suspect]
     Dosage: 100 mg, as needed
     Route: 048
     Dates: start: 2011
  3. VIAGRA [Suspect]
     Dosage: 100mg VIAGRA each after 1 hour interval
  4. VIAGRA [Suspect]
     Dosage: FOUR TABLETS OF 100MG VIAGRA AT O
  5. VIAGRA [Suspect]
     Dosage: 100 mg, UNK (took four 100 mg tablets)
  6. LEVITRA [Suspect]
     Dosage: UNK

REACTIONS (4)
  - Inappropriate schedule of drug administration [Unknown]
  - Incorrect dose administered [Unknown]
  - Drug ineffective [Recovered/Resolved]
  - Blood testosterone decreased [Unknown]
